FAERS Safety Report 9333725 (Version 3)
Quarter: 2013Q3

REPORT INFORMATION
  Report Type: Spontaneous
  Country: US (occurrence: None)
  Receive Date: 20130604
  Receipt Date: 20130731
  Transmission Date: 20140515
  Serious: Yes (Hospitalization)
  Sender: FDA-Public Use
  Company Number: JPI-P-032278

PATIENT
  Age: 47 Year
  Sex: Female
  Weight: 89.81 kg

DRUGS (3)
  1. XYREM [Suspect]
     Indication: CATAPLEXY
     Route: 048
     Dates: start: 200307
  2. PROPANOLOL (UNKNOWN) (UNKNOWN) (UNKNOWN) [Concomitant]
  3. BUPROPION HCL (UNKNOWN) [Concomitant]

REACTIONS (5)
  - Complex partial seizures [None]
  - Orthostatic hypotension [None]
  - Loss of consciousness [None]
  - Unresponsive to stimuli [None]
  - Urinary tract infection [None]
